FAERS Safety Report 21084722 (Version 1)
Quarter: 2022Q3

REPORT INFORMATION
  Report Type: Report from Study
  Country: AR (occurrence: AR)
  Receive Date: 20220714
  Receipt Date: 20220714
  Transmission Date: 20221026
  Serious: Yes (Other)
  Sender: FDA-Public Use
  Company Number: AR-PINT-2022-Neratinib-098

PATIENT

DRUGS (9)
  1. NERLYNX [Suspect]
     Active Substance: NERATINIB
     Indication: HER2 positive breast cancer
     Dosage: 240 MG, DAILY
     Route: 048
     Dates: start: 20220424, end: 20220509
  2. NERLYNX [Suspect]
     Active Substance: NERATINIB
     Dosage: 200 MG, DAILY
     Route: 048
     Dates: start: 20220510, end: 20220526
  3. NERLYNX [Suspect]
     Active Substance: NERATINIB
     Dosage: 160 MG, DAILY
     Route: 048
     Dates: start: 20220527
  4. NERLYNX [Suspect]
     Active Substance: NERATINIB
     Dosage: ()
     Route: 048
  5. Electrolyte Minerals [Concomitant]
     Indication: Diarrhoea
     Dosage: UNK
  6. Enterogemina [Concomitant]
     Indication: Product used for unknown indication
     Dosage: A BOTTLE DAILY ()
  7. LORATADINE [Concomitant]
     Active Substance: LORATADINE
     Indication: Product used for unknown indication
     Dosage: 1 TABLET
     Route: 065
  8. LOPERAMIDE [Concomitant]
     Active Substance: LOPERAMIDE
     Indication: Product used for unknown indication
     Dosage: 1 TABLET EVERY 4 HOURS
     Route: 065
  9. Bismuth cream [Concomitant]
     Indication: Product used for unknown indication
     Dosage: EVERY 4 HOURS ()
     Route: 065

REACTIONS (8)
  - Rash [Unknown]
  - Mouth ulceration [Unknown]
  - Nasal discomfort [Unknown]
  - Diarrhoea [Unknown]
  - Faeces hard [Unknown]
  - Haematochezia [Unknown]
  - Feeling abnormal [Unknown]
  - Food aversion [Unknown]

NARRATIVE: CASE EVENT DATE: 20220425
